FAERS Safety Report 25334205 (Version 2)
Quarter: 2025Q3

REPORT INFORMATION
  Report Type: Spontaneous
  Country: US (occurrence: US)
  Receive Date: 20250520
  Receipt Date: 20250716
  Transmission Date: 20251021
  Serious: Yes (Life-Threatening)
  Sender: AMNEAL
  Company Number: US-AMNEAL PHARMACEUTICALS-2025-AMRX-01831

PATIENT
  Age: 53 Year
  Sex: Male
  Weight: 94.785 kg

DRUGS (1)
  1. LEVOTHYROXINE SODIUM [Suspect]
     Active Substance: LEVOTHYROXINE SODIUM
     Indication: Thyroid therapy
     Dosage: 0.15 MILLIGRAM 1 TABLET BY MOUTH EVERY DAY
     Route: 048

REACTIONS (11)
  - Blood thyroid stimulating hormone increased [Recovered/Resolved]
  - Blood cholesterol increased [Recovered/Resolved]
  - Weight increased [Recovered/Resolved]
  - Fluid retention [Recovered/Resolved]
  - Muscle spasms [Recovered/Resolved]
  - Malaise [Recovered/Resolved]
  - Drug ineffective [Unknown]
  - Insomnia [Recovered/Resolved]
  - Tremor [Recovered/Resolved]
  - Fatigue [Recovered/Resolved]
  - Product quality issue [Unknown]
